FAERS Safety Report 4500816-7 (Version None)
Quarter: 2004Q4

REPORT INFORMATION
  Report Type: 
  Country: None (occurrence: None)
  Receive Date: 20041115
  Receipt Date: 20041108
  Transmission Date: 20050328
  Serious: Yes (Death)
  Sender: FDA-Public Use
  Company Number: JP-MERCK-0411USA01770

PATIENT
  Age: 78 Year
  Sex: Female

DRUGS (4)
  1. COZAAR [Suspect]
     Indication: CARDIAC FAILURE CHRONIC
     Route: 048
     Dates: start: 20040926, end: 20041019
  2. SYMMETREL [Suspect]
     Indication: DYSTHYMIC DISORDER
     Route: 048
     Dates: end: 20041019
  3. ZYPREXA [Suspect]
     Indication: DYSTHYMIC DISORDER
     Route: 048
     Dates: end: 20041019
  4. RISPERDAL [Suspect]
     Indication: DYSTHYMIC DISORDER
     Route: 048
     Dates: end: 20041019

REACTIONS (2)
  - MULTI-ORGAN FAILURE [None]
  - NEUROLEPTIC MALIGNANT SYNDROME [None]
